FAERS Safety Report 4356535-3 (Version None)
Quarter: 2004Q2

REPORT INFORMATION
  Report Type: 
  Country: None (occurrence: None)
  Receive Date: 20040510
  Receipt Date: 20040510
  Transmission Date: 20050107
  Serious: Yes (Hospitalization)
  Sender: FDA-Public Use
  Company Number: None

PATIENT
  Age: 38 Year
  Sex: Female
  Weight: 64.4108 kg

DRUGS (3)
  1. TEQUIN [Suspect]
     Indication: SINUSITIS
     Dosage: 1 PILL DAILY ORAL
     Route: 048
     Dates: start: 20031113, end: 20031118
  2. TOPROL-XL [Concomitant]
  3. BENICAR HCT [Concomitant]

REACTIONS (8)
  - ARTHRALGIA [None]
  - BLOOD PRESSURE INCREASED [None]
  - CHEST PAIN [None]
  - DYSPNOEA [None]
  - HEART RATE INCREASED [None]
  - HYPOAESTHESIA [None]
  - HYPOTHYROIDISM [None]
  - PALPITATIONS [None]
